FAERS Safety Report 5372915-1 (Version None)
Quarter: 2007Q2

REPORT INFORMATION
  Report Type: 
  Country: None (occurrence: None)
  Receive Date: 20070626
  Receipt Date: 20070611
  Transmission Date: 20071010
  Serious: Yes (Hospitalization, Other)
  Sender: FDA-Public Use
  Company Number: 100#08#2007-02116

PATIENT
  Age: 64 Year
  Sex: Male

DRUGS (2)
  1. METHYLPREDNISOLONE [Suspect]
     Indication: OSTEOARTHRITIS
     Dosage: INTRA-ARTICULAR
     Route: 014
     Dates: start: 20040705, end: 20040705
  2. SODIUM HYALURONATE (HYALURONATE SODIUM) INJECTION) (SODIUM HYALURONATE [Concomitant]

REACTIONS (6)
  - ARTHRITIS FUNGAL [None]
  - CHILLS [None]
  - DIRECT INFECTION TRANSMISSION [None]
  - HYPOKALAEMIA [None]
  - LABORATORY TEST INTERFERENCE [None]
  - LEUKOCYTOSIS [None]
